FAERS Safety Report 5903319-8 (Version None)
Quarter: 2008Q3

REPORT INFORMATION
  Report Type: 
  Country: None (occurrence: None)
  Receive Date: 20080930
  Receipt Date: 20080926
  Transmission Date: 20090109
  Serious: Yes (Other)
  Sender: FDA-Public Use
  Company Number: B0539268A

PATIENT
  Age: 54 Year
  Sex: Female
  Weight: 72 kg

DRUGS (2)
  1. LAPATINIB [Suspect]
     Dosage: 1250MG PER DAY
     Route: 048
     Dates: start: 20080710
  2. CAPECITABINE [Suspect]
     Dosage: 3500MG PER DAY
     Route: 048
     Dates: start: 20080710

REACTIONS (1)
  - EJECTION FRACTION DECREASED [None]
